FAERS Safety Report 15043825 (Version 1)
Quarter: 2018Q2

REPORT INFORMATION
  Report Type: Spontaneous
  Country: FR (occurrence: FR)
  Receive Date: 20180621
  Receipt Date: 20180621
  Transmission Date: 20180711
  Serious: Yes (Other)
  Sender: FDA-Public Use
  Company Number: FR-JNJFOC-20180625046

PATIENT
  Age: 42 Year
  Sex: Male
  Weight: 47 kg

DRUGS (1)
  1. RISPERDAL [Suspect]
     Active Substance: RISPERIDONE
     Indication: AGITATION
     Route: 065
     Dates: start: 201207, end: 201207

REACTIONS (5)
  - Catatonia [Recovered/Resolved]
  - Trismus [Recovered/Resolved]
  - Product use in unapproved indication [Unknown]
  - Off label use [Unknown]
  - Hypertonia [Recovered/Resolved]

NARRATIVE: CASE EVENT DATE: 201207
